FAERS Safety Report 19400219 (Version 9)
Quarter: 2022Q4

REPORT INFORMATION
  Report Type: Report from Study
  Country: CO (occurrence: CO)
  Receive Date: 20210610
  Receipt Date: 20221202
  Transmission Date: 20230112
  Serious: Yes (Other)
  Sender: FDA-Public Use
  Company Number: CO-TAKEDA-2019TUS050580

PATIENT
  Age: 50 Year
  Sex: Female
  Weight: 56 kg

DRUGS (6)
  1. VEDOLIZUMAB [Suspect]
     Active Substance: VEDOLIZUMAB
     Indication: Colitis ulcerative
     Dosage: 300 MILLIGRAM
     Route: 042
     Dates: start: 20190416
  2. MESALAMINE [Suspect]
     Active Substance: MESALAMINE
     Indication: Product used for unknown indication
     Dosage: UNK UNK, Q6HR
     Route: 065
  3. AZATHIOPRINE [Suspect]
     Active Substance: AZATHIOPRINE
     Indication: Product used for unknown indication
     Dosage: UNK
     Route: 065
  4. DIENOGEST\ETHINYL ESTRADIOL [Suspect]
     Active Substance: DIENOGEST\ETHINYL ESTRADIOL
     Indication: Product used for unknown indication
     Dosage: UNK
     Route: 065
  5. CETIRIZINE HYDROCHLORIDE [Concomitant]
     Active Substance: CETIRIZINE HYDROCHLORIDE
     Dosage: UNK UNK, Q8HR
  6. LOSARTAN [Concomitant]
     Active Substance: LOSARTAN
     Dosage: UNK UNK, QD

REACTIONS (30)
  - Rectal haemorrhage [Not Recovered/Not Resolved]
  - Nephrolithiasis [Unknown]
  - Somnolence [Unknown]
  - Discouragement [Unknown]
  - Malaise [Recovered/Resolved]
  - Heavy menstrual bleeding [Unknown]
  - Inflammation [Recovered/Resolved]
  - Weight increased [Unknown]
  - Uterine inflammation [Unknown]
  - Vaginal haemorrhage [Unknown]
  - Crystal urine present [Unknown]
  - Asthenia [Recovered/Resolved]
  - Pain [Unknown]
  - Vulvovaginal discomfort [Unknown]
  - Vaginal lesion [Recovered/Resolved]
  - Oral mucosal eruption [Recovered/Resolved]
  - Colitis [Recovered/Resolved]
  - Diarrhoea [Recovered/Resolved]
  - Mobility decreased [Unknown]
  - Tumour marker increased [Unknown]
  - Hyperglycaemia [Unknown]
  - Dizziness [Recovered/Resolved]
  - Abdominal pain [Unknown]
  - Vomiting [Recovered/Resolved]
  - Vision blurred [Unknown]
  - Abdominal distension [Not Recovered/Not Resolved]
  - Hypertension [Recovered/Resolved]
  - Headache [Unknown]
  - Back pain [Unknown]
  - Pruritus [Recovered/Resolved]

NARRATIVE: CASE EVENT DATE: 20190814
